FAERS Safety Report 6268691-0 (Version None)
Quarter: 2009Q3

REPORT INFORMATION
  Report Type: 
  Country: None (occurrence: None)
  Receive Date: 20090713
  Receipt Date: 20090713
  Transmission Date: 20100115
  Serious: Yes (Other)
  Sender: FDA-Public Use
  Company Number: None

PATIENT
  Age: 63 Year
  Sex: Female
  Weight: 94.8018 kg

DRUGS (1)
  1. LISINOPRIL [Suspect]
     Indication: PULMONARY HYPERTENSION
     Dosage: 10 MG 1 DAILY PO
     Route: 048
     Dates: start: 20090629, end: 20090708

REACTIONS (4)
  - DIZZINESS [None]
  - DYSPNOEA [None]
  - HEART RATE INCREASED [None]
  - HYPERTENSION [None]
